FAERS Safety Report 20242104 (Version 1)
Quarter: 2021Q4

REPORT INFORMATION
  Report Type: Spontaneous
  Country: US (occurrence: US)
  Receive Date: 20211228
  Receipt Date: 20211228
  Transmission Date: 20220304
  Serious: Yes (Other)
  Sender: FDA-Public Use
  Company Number: US-PFIZER INC-202101808215

PATIENT
  Age: 58 Year
  Sex: Male
  Weight: 99.79 kg

DRUGS (2)
  1. CAVERJECT [Suspect]
     Active Substance: ALPROSTADIL
     Indication: Erection increased
     Dosage: 50 INJECTED TO EACH SIDE OF HIS PENIS
     Dates: start: 20210915
  2. STERILE WATER [Concomitant]
     Active Substance: WATER
     Dosage: UNK

REACTIONS (4)
  - Penile haemorrhage [Unknown]
  - Injection site haemorrhage [Unknown]
  - Intentional product misuse [Unknown]
  - Off label use [Unknown]

NARRATIVE: CASE EVENT DATE: 20210915
